FAERS Safety Report 6381136-5 (Version None)
Quarter: 2009Q3

REPORT INFORMATION
  Report Type: 
  Country: None (occurrence: None)
  Receive Date: 20090929
  Receipt Date: 20090924
  Transmission Date: 20100115
  Serious: Yes (Hospitalization)
  Sender: FDA-Public Use
  Company Number: US-TEVA-210453USA

PATIENT
  Sex: Male
  Weight: 74.91 kg

DRUGS (10)
  1. BACLOFEN TABLETS USP, 10MG [Suspect]
     Indication: MUSCLE SPASMS
     Route: 048
     Dates: start: 20070701
  2. INTERFERON BETA-1A [Suspect]
     Indication: MULTIPLE SCLEROSIS
     Route: 058
     Dates: start: 20060504, end: 20070601
  3. CARVEDILOL [Concomitant]
     Indication: HYPERTENSION
  4. TIZANIDINE HCL [Concomitant]
     Indication: MUSCLE SPASMS
  5. DIAZEPAM [Concomitant]
     Indication: MUSCLE SPASMS
  6. MODAFINIL [Concomitant]
     Indication: FATIGUE
  7. HYDROCODONE [Concomitant]
     Indication: PAIN
  8. ZOLPIDEM TARTRATE [Concomitant]
     Indication: INSOMNIA
  9. OMEPRAZOLE [Concomitant]
  10. VITAMINS [Concomitant]

REACTIONS (6)
  - ACCIDENTAL OVERDOSE [None]
  - DEPRESSION [None]
  - HALLUCINATION [None]
  - MENTAL STATUS CHANGES [None]
  - MUSCLE SPASTICITY [None]
  - RENAL FAILURE ACUTE [None]
